FAERS Safety Report 9304395 (Version 1)
Quarter: 2013Q2

REPORT INFORMATION
  Report Type: Spontaneous
  Country: NO (occurrence: NO)
  Receive Date: 20130522
  Receipt Date: 20130522
  Transmission Date: 20140414
  Serious: Yes (Death)
  Sender: FDA-Public Use
  Company Number: NO-MYLANLABS-2013S1011086

PATIENT
  Age: 88 Year
  Sex: Female

DRUGS (1)
  1. BAKLOFEN [Suspect]
     Indication: MUSCLE SPASTICITY
     Dosage: OVERDOSE. PRESCRIBED DOSE UNKNOWN.
     Route: 048

REACTIONS (8)
  - Myoclonus [Fatal]
  - Overdose [Fatal]
  - Blood pressure ambulatory [Fatal]
  - Loss of consciousness [Fatal]
  - Respiratory depression [Fatal]
  - Pneumonia aspiration [Fatal]
  - Infection [Fatal]
  - Somnolence [None]
